FAERS Safety Report 6438398-5 (Version None)
Quarter: 2009Q4

REPORT INFORMATION
  Report Type: 
  Country: None (occurrence: None)
  Receive Date: 20091112
  Receipt Date: 20091103
  Transmission Date: 20100525
  Serious: No
  Sender: FDA-Public Use
  Company Number: US-B.I. PHARMACEUTICALS,INC./RIDGEFIELD-2009-BP-12971BP

PATIENT
  Sex: Male

DRUGS (5)
  1. SPIRIVA [Suspect]
     Indication: EMPHYSEMA
     Dosage: 18 MCG
     Route: 055
     Dates: start: 20090301
  2. METFORMIN HCL [Concomitant]
     Indication: DIABETES MELLITUS
  3. ASPIRIN [Concomitant]
     Indication: PROPHYLAXIS
  4. VITAMINS [Concomitant]
     Indication: PROPHYLAXIS
  5. C-PAP MACHINE [Concomitant]
     Indication: SLEEP APNOEA SYNDROME

REACTIONS (1)
  - DRUG INEFFECTIVE [None]
